FAERS Safety Report 17699466 (Version 3)
Quarter: 2020Q3

REPORT INFORMATION
  Report Type: Report from Study
  Country: CA (occurrence: CA)
  Receive Date: 20200423
  Receipt Date: 20200801
  Transmission Date: 20201102
  Serious: Yes (Hospitalization)
  Sender: FDA-Public Use
  Company Number: CA-TAKEDA-2019TUS034647

PATIENT
  Sex: Male

DRUGS (2)
  1. PONATINIB [Suspect]
     Active Substance: PONATINIB
     Dosage: 15 MILLIGRAM, Q72H
     Route: 048
  2. PONATINIB [Suspect]
     Active Substance: PONATINIB
     Indication: CHRONIC MYELOID LEUKAEMIA
     Dosage: UNK
     Route: 048
     Dates: start: 20190507

REACTIONS (8)
  - Penile infection [Unknown]
  - Eye haemorrhage [Unknown]
  - Arthralgia [Unknown]
  - Off label use [Unknown]
  - Oral blood blister [Unknown]
  - Infection [Unknown]
  - Blood count abnormal [Unknown]
  - Constipation [Unknown]
